FAERS Safety Report 20685757 (Version 1)
Quarter: 2022Q2

REPORT INFORMATION
  Report Type: Spontaneous
  Country: US (occurrence: US)
  Receive Date: 20220407
  Receipt Date: 20220407
  Transmission Date: 20220720
  Serious: No
  Sender: FDA-Public Use
  Company Number: US-BRISTOL-MYERS SQUIBB COMPANY-2022-014021

PATIENT
  Age: 82 Year
  Sex: Male

DRUGS (10)
  1. REVLIMID [Suspect]
     Active Substance: LENALIDOMIDE
     Indication: Plasma cell myeloma
     Route: 048
     Dates: start: 20210429, end: 20220303
  2. LISINOPRIL [Concomitant]
     Active Substance: LISINOPRIL
     Indication: Performance enhancing product use
  3. ASPIRIN [Concomitant]
     Active Substance: ASPIRIN
     Indication: Performance enhancing product use
  4. ALPRAZOLAM [Concomitant]
     Active Substance: ALPRAZOLAM
     Indication: Performance enhancing product use
  5. VELCADE [Concomitant]
     Active Substance: BORTEZOMIB
     Indication: Performance enhancing product use
  6. ACYCLOVIR [Concomitant]
     Active Substance: ACYCLOVIR
     Indication: Performance enhancing product use
  7. DOXEPIN [Concomitant]
     Active Substance: DOXEPIN
     Indication: Performance enhancing product use
  8. GLIPIZIDE [Concomitant]
     Active Substance: GLIPIZIDE
     Indication: Product used for unknown indication
  9. METFORMIN [Concomitant]
     Active Substance: METFORMIN HYDROCHLORIDE
     Indication: Product used for unknown indication
  10. OMEPRAZOLE [Concomitant]
     Active Substance: OMEPRAZOLE
     Indication: Performance enhancing product use

REACTIONS (2)
  - Nausea [Unknown]
  - Vomiting [Unknown]
